FAERS Safety Report 24602703 (Version 3)
Quarter: 2024Q4

REPORT INFORMATION
  Report Type: Spontaneous
  Country: GB (occurrence: GB)
  Receive Date: 20241111
  Receipt Date: 20241202
  Transmission Date: 20250115
  Serious: Yes (Death, Congenital Anomaly, Other)
  Sender: MYLAN
  Company Number: None

PATIENT
  Age: 1 Day
  Sex: Female

DRUGS (8)
  1. PREGABALIN [Suspect]
     Active Substance: PREGABALIN
     Indication: Back pain
     Dosage: 50 MILLIGRAM, BID
     Route: 064
     Dates: start: 20240305
  2. FOLIC ACID [Concomitant]
     Active Substance: FOLIC ACID
     Indication: Vitamin supplementation
     Dosage: UNK
     Route: 065
  3. COCODAMOL [Concomitant]
     Active Substance: ACETAMINOPHEN\CODEINE PHOSPHATE
     Dosage: UNK, PRN (30/500MGONE OR TWO TABS QDS)
     Route: 065
  4. MIRTAZAPINE [Concomitant]
     Active Substance: MIRTAZAPINE
     Dosage: UNK
     Route: 065
  5. ALBUTEROL [Concomitant]
     Active Substance: ALBUTEROL
     Dosage: UNK
     Route: 065
  6. DIAZEPAM [Concomitant]
     Active Substance: DIAZEPAM
     Dosage: 2 MILLIGRAM, Q8H (2MG PRN UP TO TDS)
     Route: 065
  7. IBUPROFEN [Concomitant]
     Active Substance: IBUPROFEN
     Dosage: 400 MILLIGRAM, Q8H (ISSUED IN NOVEMBER 23 AND JANUARY 24)
     Route: 065
  8. AMITRIPTYLINE [Concomitant]
     Active Substance: AMITRIPTYLINE
     Dosage: UNK
     Route: 065

REACTIONS (6)
  - Anencephaly [Fatal]
  - Stillbirth [Fatal]
  - Death neonatal [Fatal]
  - Congenital anomaly [Not Recovered/Not Resolved]
  - Foetal exposure during pregnancy [Unknown]
  - Medication error [Unknown]

NARRATIVE: CASE EVENT DATE: 20240305
